FAERS Safety Report 23977084 (Version 1)
Quarter: 2024Q2

REPORT INFORMATION
  Report Type: Spontaneous
  Country: BR (occurrence: BR)
  Receive Date: 20240614
  Receipt Date: 20240614
  Transmission Date: 20240716
  Serious: Yes (Hospitalization)
  Sender: FDA-Public Use
  Company Number: BR-Eisai-EC-2024-165279

PATIENT
  Age: 55 Year
  Sex: Male
  Weight: 74 kg

DRUGS (14)
  1. LENVIMA [Suspect]
     Active Substance: LENVATINIB
     Indication: Thyroid cancer metastatic
     Dosage: 2 CAPSULES OF 10 MG AND 1 CAPSULE OF 4 MG DAILY (TOTAL 24 MG/DAY). BATCH NUMBER FOR 10 MG 141638 AND
     Route: 048
     Dates: start: 202001
  2. LENVIMA [Suspect]
     Active Substance: LENVATINIB
     Dosage: 2 CAPSULES OF 10 MG AND 1 CAPSULE OF 4 MG DAILY (TOTAL 24 MG/DAY). BATCH NUMBER FOR 10 MG 141638 AND
     Route: 048
     Dates: end: 202301
  3. LENVIMA [Suspect]
     Active Substance: LENVATINIB
     Dosage: 2 CAPSULES OF 10 MG AND 1 CAPSULE OF 4 MG DAILY (TOTAL 24 MG/DAY). BATCH NUMBER FOR 10 MG 141638 AND
     Route: 048
     Dates: start: 2023, end: 202303
  4. LENVIMA [Suspect]
     Active Substance: LENVATINIB
     Dosage: 2 CAPSULES OF 10 MG AND 1 CAPSULE OF 4 MG DAILY (TOTAL 24 MG/DAY). BATCH NUMBER FOR 10 MG 141638 AND
     Route: 048
     Dates: start: 2023, end: 202312
  5. LENVIMA [Suspect]
     Active Substance: LENVATINIB
     Dosage: 2 CAPSULES OF 10 MG AND 1 CAPSULE OF 4 MG DAILY (TOTAL 24 MG/DAY). BATCH NUMBER FOR 10 MG 141638 AND
     Route: 048
     Dates: end: 202404
  6. BROMAZEPAM [Concomitant]
     Active Substance: BROMAZEPAM
     Indication: Insomnia
     Dosage: BEFORE BEDTIME.
     Route: 048
  7. ASPIRIN [Concomitant]
     Active Substance: ASPIRIN
     Indication: Product used for unknown indication
     Dosage: AFTER LUNCH.
     Route: 048
  8. RAMIPRIL [Concomitant]
     Active Substance: RAMIPRIL
     Indication: Hypertension
     Route: 048
     Dates: start: 2023
  9. BISOPROLOL [Concomitant]
     Active Substance: BISOPROLOL\BISOPROLOL FUMARATE
     Indication: Hypertension
     Route: 048
     Dates: start: 2023
  10. BRILINTA [Concomitant]
     Active Substance: TICAGRELOR
     Indication: Antiplatelet therapy
     Route: 048
  11. ROSUVASTATIN [Concomitant]
     Active Substance: ROSUVASTATIN
     Indication: Blood cholesterol increased
     Route: 048
  12. PURAN [Concomitant]
     Active Substance: LEVOTHYROXINE SODIUM
     Indication: Thyroid disorder
     Dosage: ON AN EMPTY STOMACH
     Route: 048
  13. ZOLPIDEM [Concomitant]
     Active Substance: ZOLPIDEM TARTRATE
     Indication: Insomnia
     Dosage: BEFORE BEDTIME.
     Route: 048
  14. OMEGA 3 [Concomitant]
     Active Substance: CAPSAICIN
     Indication: Vitamin supplementation
     Route: 048

REACTIONS (5)
  - Myocardial infarction [Unknown]
  - Nausea [Recovered/Resolved]
  - Diarrhoea [Recovered/Resolved]
  - Headache [Recovered/Resolved]
  - Pain [Recovered/Resolved]

NARRATIVE: CASE EVENT DATE: 20230101
